FAERS Safety Report 5661712-5 (Version None)
Quarter: 2008Q1

REPORT INFORMATION
  Report Type: 
  Country: None (occurrence: None)
  Receive Date: 20080312
  Receipt Date: 20080306
  Transmission Date: 20080703
  Serious: Yes (Hospitalization, Disabling)
  Sender: FDA-Public Use
  Company Number: B0500593A

PATIENT
  Age: 54 Year
  Sex: Male

DRUGS (6)
  1. LAMIVUDINE [Suspect]
     Indication: HIV INFECTION
     Dosage: 150MG TWICE PER DAY
     Route: 048
     Dates: start: 19990427
  2. SANILVUDINE [Suspect]
     Indication: HIV INFECTION
     Route: 048
     Dates: start: 19990427, end: 20051002
  3. NELFINAVIR MESILATE [Suspect]
     Indication: HIV INFECTION
     Route: 048
     Dates: start: 19990427, end: 20010618
  4. EFAVIRENZ [Suspect]
     Indication: HIV INFECTION
     Route: 048
     Dates: start: 20010619
  5. TENOFOVIR DISOPROXIL FUMARATE [Suspect]
     Indication: HIV INFECTION
     Dosage: 300MG PER DAY
     Route: 048
     Dates: start: 20040705
  6. PRAVASTATIN SODIUM [Concomitant]
     Dates: start: 20010401

REACTIONS (9)
  - BLOOD LACTIC ACID ABNORMAL [None]
  - CONDITION AGGRAVATED [None]
  - DIABETES MELLITUS [None]
  - HEPATIC FUNCTION ABNORMAL [None]
  - HEPATIC STEATOSIS [None]
  - HYPERLIPIDAEMIA [None]
  - LIVER DISORDER [None]
  - THIRST [None]
  - WEIGHT INCREASED [None]
